FAERS Safety Report 8351380-6 (Version None)
Quarter: 2012Q2

REPORT INFORMATION
  Report Type: 
  Country: None (occurrence: None)
  Receive Date: 20120510
  Receipt Date: 20120502
  Transmission Date: 20120825
  Serious: Yes (Other)
  Sender: FDA-Public Use
  Company Number: US-MERCK-1111USA02470

PATIENT
  Age: 50 Year
  Sex: Female

DRUGS (5)
  1. ALENDRONATE SODIUM [Suspect]
     Indication: OSTEOPENIA
     Route: 048
     Dates: start: 20080220, end: 20080101
  2. FOSAMAX [Suspect]
     Indication: OSTEOPENIA
     Route: 048
     Dates: start: 19961101, end: 20030101
  3. FOSAMAX [Suspect]
     Route: 048
     Dates: start: 20040101, end: 20110301
  4. ACTONEL [Suspect]
     Indication: OSTEOPENIA
     Route: 065
     Dates: start: 20030101, end: 20040101
  5. FOSAMAX [Suspect]
     Route: 048
     Dates: start: 20061206, end: 20080219

REACTIONS (23)
  - OSTEONECROSIS OF JAW [None]
  - OESOPHAGITIS [None]
  - LOSS OF CONSCIOUSNESS [None]
  - NEPHROPATHY TOXIC [None]
  - ABDOMINAL DISCOMFORT [None]
  - FATIGUE [None]
  - DIZZINESS [None]
  - UTERINE DISORDER [None]
  - TOOTH FRACTURE [None]
  - GASTROOESOPHAGEAL REFLUX DISEASE [None]
  - DRUG INTOLERANCE [None]
  - STRESS FRACTURE [None]
  - DRY MOUTH [None]
  - MOUTH ULCERATION [None]
  - CATARACT [None]
  - DENTAL PLAQUE [None]
  - VASCULITIS [None]
  - INTRACRANIAL ANEURYSM [None]
  - CERVICAL DYSPLASIA [None]
  - DENTAL CARIES [None]
  - VASCULAR HEADACHE [None]
  - TOOTH DISORDER [None]
  - MOUTH HAEMORRHAGE [None]
